FAERS Safety Report 25110765 (Version 1)
Quarter: 2025Q1

REPORT INFORMATION
  Report Type: Report from Study
  Country: PK (occurrence: PK)
  Receive Date: 20250324
  Receipt Date: 20250324
  Transmission Date: 20250409
  Serious: Yes (Death)
  Sender: ROCHE
  Company Number: PK-ROCHE-10000238152

PATIENT
  Age: 46 Year
  Sex: Female

DRUGS (1)
  1. HERCEPTIN [Suspect]
     Active Substance: TRASTUZUMAB
     Indication: Breast cancer metastatic
     Route: 058
     Dates: start: 20240305, end: 20250301

REACTIONS (3)
  - Headache [Fatal]
  - Condition aggravated [Unknown]
  - Neck pain [Unknown]

NARRATIVE: CASE EVENT DATE: 20250316
